FAERS Safety Report 8172927-9 (Version None)
Quarter: 2012Q1

REPORT INFORMATION
  Report Type: 
  Country: None (occurrence: None)
  Receive Date: 20120229
  Receipt Date: 20120225
  Transmission Date: 20120608
  Serious: Yes (Death, Hospitalization, Other)
  Sender: FDA-Public Use
  Company Number: US-BRISTOL-MYERS SQUIBB COMPANY-15476112

PATIENT
  Age: 65 Year
  Sex: Male

DRUGS (16)
  1. AMLODIPINE [Concomitant]
     Route: 048
  2. ALLEGRA [Concomitant]
     Indication: HYPERSENSITIVITY
     Route: 048
  3. HYDROCHLOROTHIAZIDE [Concomitant]
  4. DEXAMETHASONE [Concomitant]
     Dosage: 4MG,BID 4MG, QAM, BID,2MG QAM
  5. AVANDIA [Concomitant]
     Indication: TYPE 2 DIABETES MELLITUS
  6. DICLOXACILLIN [Concomitant]
  7. FLUCONAZOLE [Concomitant]
  8. CELEBREX [Concomitant]
  9. IPILIMUMAB [Suspect]
     Indication: MALIGNANT MELANOMA
     Dosage: NO.OF COURSES:1 324.9MG FROM 7DEC10-7DEC10 331.2MG FROM 11NOV10-11NOV10
     Route: 042
     Dates: start: 20101207
  10. LISINOPRIL [Concomitant]
     Route: 048
  11. INSPRA [Concomitant]
     Route: 048
  12. OMEPRAZOLE [Concomitant]
  13. LANTUS [Concomitant]
     Indication: TYPE 2 DIABETES MELLITUS
     Dosage: 1 DF = 100 UNITS
     Route: 058
  14. LIPITOR [Concomitant]
  15. METOPROLOL [Concomitant]
     Dosage: METOPROLOL XL
     Route: 048
  16. DAPSONE [Concomitant]

REACTIONS (4)
  - HYDROCEPHALUS [None]
  - COLITIS [None]
  - NEOPLASM MALIGNANT [None]
  - MENTAL STATUS CHANGES [None]
